FAERS Safety Report 5471477-8 (Version None)
Quarter: 2007Q3

REPORT INFORMATION
  Report Type: 
  Country: None (occurrence: None)
  Receive Date: 20070928
  Receipt Date: 20061113
  Transmission Date: 20080115
  Serious: No
  Sender: FDA-Public Use
  Company Number: US-BRISTOL-MYERS SQUIBB COMPANY-13576459

PATIENT
  Age: 7 Decade
  Sex: Male

DRUGS (1)
  1. DEFINITY [Suspect]
     Dosage: 1.5 CC OF DEFINITY IN 8 CC OF NORMAL SALINE

REACTIONS (1)
  - BACK PAIN [None]
